FAERS Safety Report 20557395 (Version 1)
Quarter: 2022Q1

REPORT INFORMATION
  Report Type: Spontaneous
  Country: GR (occurrence: GR)
  Receive Date: 20220307
  Receipt Date: 20220307
  Transmission Date: 20220423
  Serious: Yes (Hospitalization, Other)
  Sender: FDA-Public Use
  Company Number: GR-LUPIN PHARMACEUTICALS INC.-2022-02939

PATIENT
  Age: 78 Year
  Sex: Female

DRUGS (1)
  1. CEFUROXIME [Suspect]
     Active Substance: CEFUROXIME
     Indication: Product used for unknown indication
     Dosage: UNK, 1MG/0.1ML., INJECTION

REACTIONS (5)
  - Retinal pallor [Unknown]
  - Macular oedema [Recovered/Resolved]
  - Serous retinal detachment [Recovered/Resolved]
  - Macular thickening [Unknown]
  - Retinal toxicity [Unknown]
